FAERS Safety Report 4383241-1 (Version None)
Quarter: 2004Q2

REPORT INFORMATION
  Report Type: 
  Country: None (occurrence: None)
  Receive Date: 20040618
  Receipt Date: 20040528
  Transmission Date: 20050107
  Serious: Yes (Disabling)
  Sender: FDA-Public Use
  Company Number: USA030845776

PATIENT
  Age: 21 Year
  Sex: Female
  Weight: 62 kg

DRUGS (5)
  1. HUMULIN R [Suspect]
     Indication: DIABETES MELLITUS
     Dates: end: 20030101
  2. HUMULIN N [Suspect]
     Indication: DIABETES MELLITUS
  3. ILETIN II [Suspect]
     Indication: DIABETES MELLITUS
  4. ILETIN PORK NPH INSULIN (INSULIN, ANIMAL) [Suspect]
     Indication: DIABETES MELLITUS
  5. LANTUS [Concomitant]

REACTIONS (2)
  - BLINDNESS [None]
  - BLOOD GLUCOSE INCREASED [None]
